FAERS Safety Report 9486049 (Version 1)
Quarter: 2013Q3

REPORT INFORMATION
  Report Type: Spontaneous
  Country: US (occurrence: US)
  Receive Date: 20130829
  Receipt Date: 20130829
  Transmission Date: 20140515
  Serious: Yes (Other)
  Sender: FDA-Public Use
  Company Number: US-AMGEN-USASP2013059992

PATIENT
  Age: 58 Year
  Sex: Female

DRUGS (1)
  1. ENBREL [Suspect]
     Indication: PSORIATIC ARTHROPATHY
     Dosage: 25 MG, 2 TIMES/WK
     Route: 065
     Dates: start: 2011, end: 201307

REACTIONS (20)
  - Ear haemorrhage [Recovered/Resolved]
  - Cardiac failure [Unknown]
  - Middle ear effusion [Recovered/Resolved]
  - Swelling face [Recovered/Resolved]
  - Pyrexia [Recovered/Resolved]
  - Inflammation [Not Recovered/Not Resolved]
  - Dyspnoea [Not Recovered/Not Resolved]
  - Fatigue [Not Recovered/Not Resolved]
  - Increased tendency to bruise [Not Recovered/Not Resolved]
  - Platelet count decreased [Not Recovered/Not Resolved]
  - Arthritis [Unknown]
  - Arrhythmia [Unknown]
  - Feeling abnormal [Unknown]
  - Oedema peripheral [Not Recovered/Not Resolved]
  - Eye swelling [Recovered/Resolved]
  - Hot flush [Not Recovered/Not Resolved]
  - Epistaxis [Recovered/Resolved]
  - Rash [Unknown]
  - Laceration [Not Recovered/Not Resolved]
  - Psoriasis [Unknown]
